FAERS Safety Report 9181696 (Version 2)
Quarter: 2013Q3

REPORT INFORMATION
  Report Type: Spontaneous
  Country: AU (occurrence: AU)
  Receive Date: 20130322
  Receipt Date: 20130823
  Transmission Date: 20140515
  Serious: Yes (Hospitalization)
  Sender: FDA-Public Use
  Company Number: AU-BRISTOL-MYERS SQUIBB COMPANY-18591214

PATIENT
  Age: 57 Year
  Sex: Male

DRUGS (9)
  1. ABATACEPT SUBQ INJECTION 125MG/ML [Suspect]
     Indication: RHEUMATOID ARTHRITIS
     Route: 058
     Dates: start: 20130214
  2. METHOTREXATE [Concomitant]
     Dosage: 1DF: 25UNITS NOS
  3. FOLIC ACID [Concomitant]
     Dosage: 1DF: 5UNITS NOS
  4. PREDNISONE [Concomitant]
     Dosage: 1DF: 5UNITS NOS
  5. FLUOXETINE [Concomitant]
  6. OXYCODONE [Concomitant]
  7. RAMIPRIL [Concomitant]
  8. NITRAZEPAM [Concomitant]
  9. HYDROXYCHLOROQUINE [Concomitant]
     Dosage: 1DF: 400UNITS NOS

REACTIONS (8)
  - Encephalitis viral [Recovering/Resolving]
  - Urinary tract infection [Unknown]
  - Fall [Unknown]
  - Excoriation [Unknown]
  - Laceration [Unknown]
  - Herpes virus infection [Unknown]
  - Blister [Unknown]
  - Thermal burn [Unknown]
